FAERS Safety Report 4450350-8 (Version None)
Quarter: 2004Q3

REPORT INFORMATION
  Report Type: 
  Country: None (occurrence: None)
  Receive Date: 20040914
  Receipt Date: 20040907
  Transmission Date: 20050211
  Serious: Yes (Hospitalization)
  Sender: FDA-Public Use
  Company Number: 2004CG01757

PATIENT
  Age: 79 Year
  Sex: Female

DRUGS (6)
  1. MOPRAL [Suspect]
     Dosage: 20 MG QD PO
     Route: 048
     Dates: start: 20040220, end: 20040320
  2. PLAQUENIL [Suspect]
     Dosage: 2 DF QD PO
     Route: 048
     Dates: start: 20040220, end: 20040305
  3. CORTANCYL [Suspect]
     Dosage: 7 MG QD PO
     Route: 048
     Dates: start: 20040220
  4. ZOLPIDEM TARTRATE [Suspect]
     Dosage: 5 MG QD PO
     Route: 048
     Dates: start: 20030101
  5. CELECTOL [Suspect]
     Dosage: 200 MG QD PO
     Route: 048
     Dates: start: 20030101
  6. MONICOR [Suspect]
     Dosage: 60 MG QD PO
     Route: 048
     Dates: start: 20030101

REACTIONS (6)
  - CHEILITIS [None]
  - ENANTHEMA [None]
  - GENERALISED ERYTHEMA [None]
  - RASH MORBILLIFORM [None]
  - RASH PRURITIC [None]
  - TOXIC SKIN ERUPTION [None]
